FAERS Safety Report 8766929 (Version 2)
Quarter: 2012Q4

REPORT INFORMATION
  Report Type: 
  Country: US (occurrence: US)
  Receive Date: 20120903
  Receipt Date: 20121001
  Transmission Date: 20130627
  Serious: Yes (Hospitalization, Other)
  Sender: FDA-Public Use
  Company Number: US-PFIZER INC-2004008336

PATIENT
  Sex: Female
  Weight: 77.1 kg

DRUGS (7)
  1. DILANTIN [Suspect]
     Indication: CONVULSION
     Dosage: UNK, 2x/day
     Route: 048
  2. DILANTIN [Suspect]
     Indication: EPILEPSY
  3. NEURONTIN [Suspect]
     Indication: CONVULSION
     Dosage: UNK
  4. DEPAKOTE [Suspect]
     Indication: CONVULSION
     Dosage: UNK
  5. KEPPRA [Suspect]
     Indication: CONVULSION
     Dosage: UNK
     Dates: end: 2008
  6. TEGRETOL [Suspect]
     Indication: CONVULSION
     Dosage: UNK
  7. ZYPREXA [Suspect]
     Indication: DEPRESSION
     Dosage: UNK

REACTIONS (22)
  - Gingival hyperplasia [Unknown]
  - Gingivitis [Unknown]
  - Blood immunoglobulin A decreased [Unknown]
  - Tremor [Unknown]
  - Autoimmune disorder [Unknown]
  - Diabetes mellitus [Not Recovered/Not Resolved]
  - Hypothyroidism [Unknown]
  - Thyroid neoplasm [Unknown]
  - Arthritis [Not Recovered/Not Resolved]
  - Road traffic accident [Unknown]
  - Brain injury [Unknown]
  - Convulsion [Unknown]
  - Depression [Unknown]
  - Hypertension [Unknown]
  - Mass [Unknown]
  - Blood glucose increased [Unknown]
  - Pain [Not Recovered/Not Resolved]
  - Pain [Recovered/Resolved]
  - Orthodontic appliance user [Unknown]
  - Feeling abnormal [Unknown]
  - Glycosylated haemoglobin increased [Unknown]
  - Aggression [Unknown]
